FAERS Safety Report 9604811 (Version 1)
Quarter: 2013Q4

REPORT INFORMATION
  Report Type: Spontaneous
  Country: US (occurrence: US)
  Receive Date: 20131008
  Receipt Date: 20131008
  Transmission Date: 20140711
  Serious: Yes (Death, Hospitalization)
  Sender: FDA-Public Use
  Company Number: US-PFIZER INC-2013285656

PATIENT
  Sex: Male

DRUGS (1)
  1. MOTRIN [Suspect]
     Dosage: 2 DF, UNK
     Route: 048
     Dates: start: 20101003

REACTIONS (2)
  - Stevens-Johnson syndrome [Fatal]
  - Toxic epidermal necrolysis [Fatal]
